FAERS Safety Report 7049584-8 (Version None)
Quarter: 2010Q4

REPORT INFORMATION
  Report Type: 
  Country: None (occurrence: None)
  Receive Date: 20101018
  Receipt Date: 20101006
  Transmission Date: 20110411
  Serious: Yes (Disabling)
  Sender: FDA-Public Use
  Company Number: US-BAYER-201011904NA

PATIENT
  Age: 32 Year
  Sex: Female

DRUGS (5)
  1. MIRENA [Suspect]
     Indication: MENSTRUAL CYCLE MANAGEMENT
     Dosage: CONTINUOUS
     Route: 015
     Dates: start: 20081022, end: 20091020
  2. KETOROLAC TROMETHAMINE [Concomitant]
  3. VIBRAMYCIN [Concomitant]
     Dosage: UNIT DOSE: 100 MG
  4. TORADOL [Concomitant]
  5. MIDRIN [Concomitant]

REACTIONS (6)
  - MEDICAL DEVICE COMPLICATION [None]
  - MENORRHAGIA [None]
  - PELVIC DISCOMFORT [None]
  - PELVIC PAIN [None]
  - POST PROCEDURAL HAEMORRHAGE [None]
  - PROCEDURAL PAIN [None]
